FAERS Safety Report 7997886-0 (Version None)
Quarter: 2011Q4

REPORT INFORMATION
  Report Type: 
  Country: None (occurrence: None)
  Receive Date: 20111221
  Receipt Date: 20111216
  Transmission Date: 20120403
  Serious: Yes (Hospitalization, Other)
  Sender: FDA-Public Use
  Company Number: AT-BRISTOL-MYERS SQUIBB COMPANY-16058257

PATIENT
  Age: 57 Year
  Sex: Male

DRUGS (2)
  1. SPRYCEL [Suspect]
     Indication: CHRONIC MYELOID LEUKAEMIA
     Dosage: INTER ON 31JUL11, RESTART ON 11AUG11 AND INTER ON 13SEP11
     Route: 048
     Dates: start: 20080221
  2. FRAGMIN [Concomitant]
     Dosage: 1DF=5000 IE
     Route: 058
     Dates: start: 20110906

REACTIONS (2)
  - COLON CANCER [None]
  - ILEUS [None]
